FAERS Safety Report 7908977-4 (Version None)
Quarter: 2011Q4

REPORT INFORMATION
  Report Type: 
  Country: None (occurrence: None)
  Receive Date: 20111111
  Receipt Date: 20111101
  Transmission Date: 20120403
  Serious: Yes (Death)
  Sender: FDA-Public Use
  Company Number: AU-JNJFOC-20111101594

PATIENT
  Age: 48 Year
  Sex: Female

DRUGS (4)
  1. INFLIXIMAB, RECOMBINANT [Suspect]
     Route: 042
     Dates: start: 20000101
  2. INFLIXIMAB, RECOMBINANT [Suspect]
     Indication: ERYTHEMA NODOSUM
     Route: 042
     Dates: start: 20010901, end: 20040101
  3. INFLIXIMAB, RECOMBINANT [Suspect]
     Route: 042
     Dates: start: 20010901, end: 20040101
  4. INFLIXIMAB, RECOMBINANT [Suspect]
     Indication: CROHN'S DISEASE
     Route: 042
     Dates: start: 20000101

REACTIONS (4)
  - INTESTINAL OBSTRUCTION [None]
  - PLEURAL EFFUSION [None]
  - OVARIAN CANCER [None]
  - BREAST CANCER [None]
